FAERS Safety Report 5668727-1 (Version None)
Quarter: 2008Q1

REPORT INFORMATION
  Report Type: 
  Country: None (occurrence: None)
  Receive Date: 20080312
  Receipt Date: 20080312
  Transmission Date: 20080703
  Serious: Yes (Hospitalization)
  Sender: FDA-Public Use
  Company Number: None

PATIENT
  Age: 22 Year
  Sex: Male
  Weight: 67 kg

DRUGS (1)
  1. TRIMETHOPRIM-SULFAMETHOXAZOLE [Suspect]
     Indication: INFECTION
     Dosage: BID PO
     Route: 048
     Dates: start: 20080226, end: 20080304

REACTIONS (4)
  - BRADYCARDIA [None]
  - HYPOTENSION [None]
  - RASH [None]
  - STEVENS-JOHNSON SYNDROME [None]
